FAERS Safety Report 6018217-1 (Version None)
Quarter: 2008Q4

REPORT INFORMATION
  Report Type: 
  Country: None (occurrence: None)
  Receive Date: 20081223
  Receipt Date: 20081218
  Transmission Date: 20090506
  Serious: Yes (Other)
  Sender: FDA-Public Use
  Company Number: DE-BRISTOL-MYERS SQUIBB COMPANY-14448831

PATIENT
  Age: 57 Year
  Sex: Male
  Weight: 82 kg

DRUGS (4)
  1. CETUXIMAB [Suspect]
     Indication: COLORECTAL CANCER
     Route: 042
     Dates: start: 20081210
  2. IRINOTECAN HCL [Suspect]
     Indication: COLORECTAL CANCER
     Route: 042
     Dates: start: 20081210
  3. FLUOROURACIL [Suspect]
     Indication: COLORECTAL CANCER
     Dosage: ALSO 4640MG,1 IN 2WK,INTRAVENOUS, FROM 10-DEC-08-ONGOING
     Route: 040
     Dates: start: 20081210
  4. FOLINIC ACID [Suspect]
     Indication: COLORECTAL CANCER
     Route: 042

REACTIONS (1)
  - THROMBOSIS [None]
